FAERS Safety Report 5166525-9 (Version None)
Quarter: 2006Q4

REPORT INFORMATION
  Report Type: 
  Country: None (occurrence: None)
  Receive Date: 20061207
  Receipt Date: 20061127
  Transmission Date: 20070319
  Serious: Yes (Other)
  Sender: FDA-Public Use
  Company Number: PHBS2006FI18432

PATIENT
  Age: 33 Month

DRUGS (1)
  1. TRILEPTAL [Suspect]
     Dosage: MATERNAL DOSE: 600 THEN 900 THEN 1500 MG/DAY
     Route: 064

REACTIONS (2)
  - DRUG EXPOSURE DURING PREGNANCY [None]
  - SPEECH DISORDER DEVELOPMENTAL [None]
